FAERS Safety Report 10395349 (Version 3)
Quarter: 2015Q1

REPORT INFORMATION
  Report Type: Spontaneous
  Country: US (occurrence: US)
  Receive Date: 20140820
  Receipt Date: 20150126
  Transmission Date: 20150720
  Serious: Yes (Other)
  Sender: FDA-Public Use
  Company Number: US-PFIZER INC-2014231363

PATIENT
  Age: 56 Year
  Sex: Female
  Weight: 70 kg

DRUGS (7)
  1. BABY ASPIRIN [Concomitant]
     Active Substance: ASPIRIN
     Dosage: UNK
     Dates: start: 2004
  2. ATORVASTATIN [Concomitant]
     Active Substance: ATORVASTATIN
     Indication: BLOOD CHOLESTEROL INCREASED
     Dosage: UNK
     Dates: start: 2004
  3. LYRICA [Suspect]
     Active Substance: PREGABALIN
     Indication: DIABETIC NEUROPATHY
     Dosage: 150 MG, 2X/DAY
     Route: 048
     Dates: start: 2011
  4. METFORMIN [Concomitant]
     Active Substance: METFORMIN HYDROCHLORIDE
     Indication: DIABETES MELLITUS
     Dosage: 1000 MG, UNK
     Dates: start: 2004
  5. IRON [Concomitant]
     Active Substance: IRON
     Dosage: UNK
     Dates: start: 2004
  6. LISINOPRIL. [Concomitant]
     Active Substance: LISINOPRIL
     Dosage: UNK
     Dates: start: 2004
  7. CALCIUM [Concomitant]
     Active Substance: CALCIUM
     Dosage: UNK
     Dates: start: 2004

REACTIONS (7)
  - Drug dependence [Unknown]
  - Diabetic neuropathy [Unknown]
  - Drug withdrawal syndrome [Unknown]
  - Decreased appetite [Unknown]
  - Weight decreased [Unknown]
  - Pain in extremity [Unknown]
  - Malaise [Unknown]
